FAERS Safety Report 9303957 (Version 2)
Quarter: 2013Q4

REPORT INFORMATION
  Report Type: Spontaneous
  Country: GB (occurrence: GB)
  Receive Date: 20130522
  Receipt Date: 20131021
  Transmission Date: 20140711
  Serious: Yes (Other)
  Sender: FDA-Public Use
  Company Number: GB-WATSON-2013-08572

PATIENT
  Age: 69 Year
  Sex: Female

DRUGS (8)
  1. ALENDRONATE SODIUM- (UNKNOWN) [Suspect]
     Indication: OSTEOPOROSIS PROPHYLAXIS
     Dosage: 70 MG, 1 PER 1 WEEK
     Route: 048
     Dates: start: 201106
  2. ASPIRIN [Concomitant]
     Indication: ATRIAL FIBRILLATION
     Dosage: 75 MG, UNKNOWN
     Route: 048
     Dates: start: 201204
  3. PREDNISOLONE [Concomitant]
     Indication: POLYMYALGIA RHEUMATICA
     Dosage: 5 MG, UNKNOWN, LONG TERM THERAPY
     Route: 048
  4. PREDNISOLONE [Concomitant]
     Route: 048
  5. SOTALOL [Concomitant]
     Indication: ATRIAL FIBRILLATION
     Dosage: 80 MG, BID
     Route: 048
  6. SOTALOL [Concomitant]
     Route: 048
     Dates: start: 2013
  7. GLUCOSAMINE [Concomitant]
     Indication: POLYMYALGIA RHEUMATICA
     Dosage: UNK UNK, UNKNOWN
     Route: 048
  8. GLUCOSAMINE [Concomitant]
     Route: 048

REACTIONS (1)
  - Atrial fibrillation [Recovering/Resolving]
